FAERS Safety Report 23593618 (Version 2)
Quarter: 2024Q1

REPORT INFORMATION
  Report Type: Spontaneous
  Country: JP (occurrence: JP)
  Receive Date: 20240304
  Receipt Date: 20240324
  Transmission Date: 20240409
  Serious: Yes (Hospitalization, Other)
  Sender: FDA-Public Use
  Company Number: JP-SA-2024SA067030

PATIENT
  Age: 60 Year
  Sex: Female
  Weight: 40 kg

DRUGS (1)
  1. FABRAZYME [Suspect]
     Active Substance: AGALSIDASE BETA
     Indication: Fabry^s disease
     Dosage: DAILY DOSE: 40 MG
     Route: 041
     Dates: start: 202107

REACTIONS (2)
  - Cerebral infarction [Unknown]
  - Hypoaesthesia [Unknown]

NARRATIVE: CASE EVENT DATE: 20240202
